FAERS Safety Report 23224515 (Version 1)
Quarter: 2023Q4

REPORT INFORMATION
  Report Type: Spontaneous
  Country: SE (occurrence: SE)
  Receive Date: 20231124
  Receipt Date: 20231124
  Transmission Date: 20240110
  Serious: Yes (Hospitalization)
  Sender: FDA-Public Use
  Company Number: None

PATIENT
  Age: 85 Year
  Sex: Female

DRUGS (10)
  1. HYDROXYUREA [Suspect]
     Active Substance: HYDROXYUREA
     Indication: Polycythaemia vera
     Dates: start: 20181214
  2. ESTRIOL [Concomitant]
     Active Substance: ESTRIOL
     Dates: start: 20180109
  3. Folsyra Vitabalans [Concomitant]
     Dosage: DAILY DOSE: 1 MILLIGRAM
     Dates: start: 20230318
  4. ASPIRIN [Concomitant]
     Active Substance: ASPIRIN
     Dosage: DAILY DOSE: 75 MILLIGRAM
     Dates: start: 20181107
  5. CYANOCOBALAMIN [Concomitant]
     Active Substance: CYANOCOBALAMIN
     Dosage: DAILY DOSE: 1 MILLIGRAM
     Dates: start: 20230802
  6. METOPROLOL [Concomitant]
     Active Substance: METOPROLOL
     Dosage: DAILY DOSE: 50 MILLIGRAM
     Dates: start: 20170913
  7. ACETAMINOPHEN [Concomitant]
     Active Substance: ACETAMINOPHEN
     Dates: start: 20210416
  8. DAPAGLIFLOZIN [Concomitant]
     Active Substance: DAPAGLIFLOZIN
     Dosage: DAILY DOSE: 10 MILLIGRAM
     Dates: start: 20230602
  9. LOSARTAN/HYDROCHLOROTHIAZIDE KRKA [Concomitant]
     Dosage: DAILY DOSE: 1 DOSAGE FORM
     Dates: start: 20220924
  10. OMEPRAZOLE [Concomitant]
     Active Substance: OMEPRAZOLE
     Dates: start: 20170503

REACTIONS (2)
  - Aplastic anaemia [Recovering/Resolving]
  - Atrial fibrillation [Recovering/Resolving]

NARRATIVE: CASE EVENT DATE: 20231031
